FAERS Safety Report 11419801 (Version 1)
Quarter: 2015Q3

REPORT INFORMATION
  Report Type: Spontaneous
  Country: US (occurrence: None)
  Receive Date: 20150825
  Receipt Date: 20150825
  Transmission Date: 20151125
  Serious: No
  Sender: FDA-Public Use
  Company Number: None

PATIENT
  Age: 49 Year
  Sex: Female
  Weight: 134.72 kg

DRUGS (22)
  1. IMITREX [Concomitant]
     Active Substance: SUMATRIPTAN\SUMATRIPTAN SUCCINATE
  2. METOPROLOL XL [Concomitant]
     Active Substance: METOPROLOL
  3. ATORVASTATIN [Concomitant]
     Active Substance: ATORVASTATIN
  4. METHYLPHENIDATE. [Concomitant]
     Active Substance: METHYLPHENIDATE
  5. TRAZODONE [Concomitant]
     Active Substance: TRAZODONE HYDROCHLORIDE
  6. PRILOSEC [Concomitant]
     Active Substance: OMEPRAZOLE MAGNESIUM
  7. ELESTRIN [Concomitant]
     Active Substance: ESTRADIOL
  8. LASIX [Concomitant]
     Active Substance: FUROSEMIDE
  9. ASA [Concomitant]
     Active Substance: ASPIRIN
  10. BUSPAR [Concomitant]
     Active Substance: BUSPIRONE HYDROCHLORIDE
  11. ESCITALOPRAM [Concomitant]
     Active Substance: ESCITALOPRAM OXALATE
  12. LORTAB [Concomitant]
     Active Substance: ACETAMINOPHEN\HYDROCODONE BITARTRATE
  13. PUMPKIN SEED OIL [Concomitant]
  14. GAS-X [Concomitant]
     Active Substance: DIMETHICONE
  15. PEPTO-BISMOL [Concomitant]
     Active Substance: BISMUTH SUBSALICYLATE\CALCIUM CARBONATE
  16. PROGESTERONE. [Concomitant]
     Active Substance: PROGESTERONE
  17. COLACE [Concomitant]
     Active Substance: DOCUSATE SODIUM
  18. LUTEIN [Concomitant]
     Active Substance: LUTEIN
  19. VICTOZA [Suspect]
     Active Substance: LIRAGLUTIDE
     Indication: TYPE 2 DIABETES MELLITUS
     Route: 058
     Dates: start: 20150701, end: 20150824
  20. VISTARIL [Concomitant]
     Active Substance: HYDROXYZINE PAMOATE
  21. FISH OIL [Concomitant]
     Active Substance: FISH OIL
  22. NAPROXEN. [Concomitant]
     Active Substance: NAPROXEN

REACTIONS (4)
  - Abdominal distension [None]
  - Abdominal discomfort [None]
  - Lactose intolerance [None]
  - Abdominal pain [None]

NARRATIVE: CASE EVENT DATE: 20150701
